FAERS Safety Report 15044898 (Version 1)
Quarter: 2018Q2

REPORT INFORMATION
  Report Type: Report from Study
  Country: JP (occurrence: JP)
  Receive Date: 20180621
  Receipt Date: 20180621
  Transmission Date: 20180711
  Serious: Yes (Other)
  Sender: FDA-Public Use
  Company Number: JP-TAKEDA-2018MPI008125

PATIENT
  Age: 74 Year
  Sex: Male
  Weight: 77.5 kg

DRUGS (7)
  1. DEXAMETHASONE. [Suspect]
     Active Substance: DEXAMETHASONE
     Indication: PLASMA CELL MYELOMA
     Dosage: 20 MG, QD
     Route: 065
     Dates: start: 20170316, end: 20180214
  2. VALIXA [Concomitant]
     Active Substance: VALGANCICLOVIR
     Indication: CYTOMEGALOVIRUS VIRAEMIA
     Dosage: 900 MG, QD
     Route: 048
  3. DARZALEX [Suspect]
     Active Substance: DARATUMUMAB
     Indication: PLASMA CELL MYELOMA
     Route: 041
     Dates: start: 20171130
  4. VALIXA [Concomitant]
     Active Substance: VALGANCICLOVIR
     Dosage: 900 MG, QD
     Route: 048
  5. VALIXA [Concomitant]
     Active Substance: VALGANCICLOVIR
     Dosage: 1800 MG, QD
     Route: 048
  6. VALIXA [Concomitant]
     Active Substance: VALGANCICLOVIR
     Dosage: 1800 MG, QD
     Route: 048
  7. VELCADE [Suspect]
     Active Substance: BORTEZOMIB
     Indication: PLASMA CELL MYELOMA
     Dosage: 1.3 MG/M2, UNK
     Route: 058
     Dates: start: 20170316, end: 20180205

REACTIONS (4)
  - Thrombocytopenia [Recovering/Resolving]
  - Pulmonary cavitation [Not Recovered/Not Resolved]
  - Cytomegalovirus test positive [Not Recovered/Not Resolved]
  - Spinal compression fracture [Not Recovered/Not Resolved]

NARRATIVE: CASE EVENT DATE: 20171213
